FAERS Safety Report 17095891 (Version 1)
Quarter: 2019Q4

REPORT INFORMATION
  Report Type: Spontaneous
  Country: DE (occurrence: DE)
  Receive Date: 20191201
  Receipt Date: 20191201
  Transmission Date: 20200122
  Serious: Yes (Other)
  Sender: FDA-Public Use
  Company Number: DE-SA-2019SA325760

PATIENT
  Age: 84 Year
  Sex: Male
  Weight: 85 kg

DRUGS (5)
  1. SIMVA ARISTO [Concomitant]
     Active Substance: SIMVASTATIN
     Dosage: 20 MG, QD (0-0-0.5)
     Dates: start: 20190807
  2. VALSARTAN DURA [Concomitant]
     Active Substance: VALSARTAN
     Dosage: 80 MG, QD (0.5-0-0)
  3. METFORMIN AXCOUNT [Concomitant]
     Active Substance: METFORMIN HYDROCHLORIDE
     Dosage: 500 MG, BID (1-0-1)
     Dates: start: 20190807
  4. TAMSULOSIN HYDROCHLORIDE. [Suspect]
     Active Substance: TAMSULOSIN HYDROCHLORIDE
     Dosage: 0.4 MG, QD (1-0-0)
     Route: 048
     Dates: start: 20190812, end: 20190812
  5. ELIQUIS [Concomitant]
     Active Substance: APIXABAN
     Dosage: 2 DF, QD

REACTIONS (4)
  - Urinary retention [Recovering/Resolving]
  - Nocturia [Recovering/Resolving]
  - Product substitution issue [Unknown]
  - Micturition urgency [Recovering/Resolving]

NARRATIVE: CASE EVENT DATE: 20190812
